FAERS Safety Report 5614672-7 (Version None)
Quarter: 2008Q1

REPORT INFORMATION
  Report Type: 
  Country: None (occurrence: None)
  Receive Date: 20080131
  Receipt Date: 20080128
  Transmission Date: 20080703
  Serious: Yes (Death, Life-Threatening)
  Sender: FDA-Public Use
  Company Number: CLOF-1000045

PATIENT
  Age: 15 Year
  Sex: Male
  Weight: 75.5 kg

DRUGS (11)
  1. CLOLAR [Suspect]
     Indication: BONE MARROW CONDITIONING REGIMEN
     Dosage: 38 MG, QDX5, INTRAVENOUS
     Route: 042
     Dates: start: 20080103, end: 20080107
  2. BUSULFAN (BUSULFAN) UNKNOWN [Suspect]
     Indication: BONE MARROW CONDITIONING REGIMEN
     Dosage: 3.2 MG/KG, QD, INTRAVENOUS
     Route: 042
     Dates: start: 20080104, end: 20080105
  3. ATIVAN (LORAZEPAM) ORAL DRUG UNSPECIFIED FORM [Concomitant]
  4. HEPARIN [Concomitant]
  5. OXYGEN (OXYGEN) [Concomitant]
  6. K-DUR (POTASSIUM CHLORIDE) ORAL DRUG UNSPECIFIED FORM [Concomitant]
  7. LASIX (FUROSEMIDE) ORAL DRUG UNSPECIFIED FORM [Concomitant]
  8. MORPHINE (MORPHINE) ORAL DRUG UNSPECIFIED FORM [Concomitant]
  9. OXYCONTIN (OXYCODONE HYDROCHLORIDE) ORAL DRUG UNSPECIFIED FORM [Concomitant]
  10. ZOFRAN (ONDANSETRON) ORAL DRUG UNSPECIFIED FORM [Concomitant]
  11. SODIUM CHLORIDE (SODIUM CHLORIDE) INTRAVENOUS INFUSION [Concomitant]

REACTIONS (3)
  - HYPOXIA [None]
  - PULMONARY EMBOLISM [None]
  - THROMBOCYTOPENIA [None]
